FAERS Safety Report 7438396-9 (Version None)
Quarter: 2011Q2

REPORT INFORMATION
  Report Type: 
  Country: None (occurrence: None)
  Receive Date: 20110418
  Receipt Date: 20110404
  Transmission Date: 20111010
  Serious: Yes (Death, Life-Threatening, Other)
  Sender: FDA-Public Use
  Company Number: 2008-00980

PATIENT
  Age: 58 Year
  Sex: Male
  Weight: 87 kg

DRUGS (27)
  1. LEVOFLOXACIN [Concomitant]
  2. SLOW-K [Concomitant]
  3. NEUROTROPIN (ORGAN LYSATE, STANDARDIZED) [Concomitant]
  4. LAXOBERON (SODIUM PICOSULFATE) [Concomitant]
  5. RIVOTRIL (CLONAZEPAM) [Concomitant]
  6. GLYSENNID [Concomitant]
  7. GABAPENTIN [Concomitant]
  8. LUPRAC (TORASEMIDE) [Concomitant]
  9. BIOFERMIN (STREPTOCOCCUS FAECALIS, LACTOBACILLUS ACIDOPHILUS, BACILLUS [Concomitant]
  10. OMEPRAZOLE [Concomitant]
  11. LIORESAL [Concomitant]
  12. MS REISHIPPU (CAMPHOR, MENTHOL, METHYL SALICYLATE) [Concomitant]
  13. ITRACONAZOLE [Suspect]
     Indication: PROPHYLAXIS
     Dosage: 200 MG, ORAL
     Route: 048
     Dates: end: 20080205
  14. ACETAMINOPHEN [Suspect]
     Indication: PROPHYLAXIS
     Dosage: 200 MG, ORAL
     Route: 048
     Dates: start: 20071228
  15. ALLOPURINOL [Concomitant]
  16. AZUNOL #1 (AZULENE) [Concomitant]
  17. DEXAMETHASONE SODIUM PHOSPHATE [Suspect]
     Indication: MULTIPLE MYELOMA
     Dosage: 20 MG, INTRAVENOUS
     Route: 042
     Dates: start: 20071113, end: 20071202
  18. MAXIPIME [Concomitant]
  19. LENDORM [Concomitant]
  20. HYDROCORTISONE SODIUM SUCCINATE [Concomitant]
  21. OXYCODONE HCL [Concomitant]
  22. VELCADE [Suspect]
     Indication: MULTIPLE MYELOMA
     Dosage: 2.10 MG, INTRAVENOUS; 2.5 MG, INTRAVENOUS; 1.3 MG, INTRAVENOUS
     Route: 042
     Dates: start: 20071212, end: 20071212
  23. VELCADE [Suspect]
     Indication: MULTIPLE MYELOMA
     Dosage: 2.10 MG, INTRAVENOUS; 2.5 MG, INTRAVENOUS; 1.3 MG, INTRAVENOUS
     Route: 042
     Dates: start: 20071217, end: 20071225
  24. VELCADE [Suspect]
     Indication: MULTIPLE MYELOMA
     Dosage: 2.10 MG, INTRAVENOUS; 2.5 MG, INTRAVENOUS; 1.3 MG, INTRAVENOUS
     Route: 042
     Dates: start: 20071113, end: 20071123
  25. CORTRIL [Concomitant]
  26. DEXAMETHASONE [Concomitant]
  27. OXYCONTIN [Concomitant]

REACTIONS (3)
  - CELLULITIS [None]
  - PLATELET COUNT DECREASED [None]
  - PNEUMONIA BACTERIAL [None]
